FAERS Safety Report 7284096-8 (Version None)
Quarter: 2011Q1

REPORT INFORMATION
  Report Type: 
  Country: None (occurrence: None)
  Receive Date: 20110209
  Receipt Date: 20110203
  Transmission Date: 20110831
  Serious: Yes (Hospitalization, Other)
  Sender: FDA-Public Use
  Company Number: US-PFIZER INC-2010157194

PATIENT
  Sex: Female

DRUGS (10)
  1. CHANTIX [Suspect]
     Dosage: STARTER PACK
     Dates: start: 20080717, end: 20080722
  2. ACYCLOVIR [Concomitant]
     Indication: HERPES VIRUS INFECTION
     Dosage: UNK
     Dates: start: 20070301
  3. PROPOXYPHENE HCL AND ACETAMINOPHEN [Concomitant]
     Indication: PAIN
  4. CHANTIX [Suspect]
     Indication: SMOKING CESSATION THERAPY
     Dosage: STARTER PACK AND TWO CONTINUATION REFILLS
     Dates: start: 20071201, end: 20080101
  5. TRAMADOL [Concomitant]
     Indication: OSTEOARTHRITIS
     Dosage: UNK
     Dates: start: 20060901, end: 20080401
  6. PROPOXYPHENE HCL AND ACETAMINOPHEN [Concomitant]
     Indication: ARTHRALGIA
  7. LORAZEPAM [Concomitant]
     Indication: ANXIETY
     Dosage: UNK
     Dates: start: 20051001, end: 20100801
  8. LORAZEPAM [Concomitant]
     Indication: INSOMNIA
  9. PROPOXYPHENE HCL AND ACETAMINOPHEN [Concomitant]
     Indication: MUSCULOSKELETAL CHEST PAIN
     Dosage: UNK
     Dates: start: 20060701, end: 20081201
  10. FERROUS SULFATE [Concomitant]
     Indication: ANAEMIA
     Dosage: UNK
     Dates: start: 20060401, end: 20101201

REACTIONS (14)
  - AGGRESSION [None]
  - ANXIETY [None]
  - SOCIAL AVOIDANT BEHAVIOUR [None]
  - SUICIDE ATTEMPT [None]
  - INTENTIONAL OVERDOSE [None]
  - MAJOR DEPRESSION [None]
  - PARANOIA [None]
  - IMPULSIVE BEHAVIOUR [None]
  - AFFECTIVE DISORDER [None]
  - MENTAL DISORDER [None]
  - THINKING ABNORMAL [None]
  - ABNORMAL BEHAVIOUR [None]
  - PANIC DISORDER WITH AGORAPHOBIA [None]
  - FATIGUE [None]
